FAERS Safety Report 8396355-6 (Version None)
Quarter: 2012Q2

REPORT INFORMATION
  Report Type: 
  Country: None (occurrence: None)
  Receive Date: 20120530
  Receipt Date: 20120524
  Transmission Date: 20120825
  Serious: Yes (Hospitalization, Disabling, Other)
  Sender: FDA-Public Use
  Company Number: US-MERCK-1112USA03021

PATIENT
  Age: 62 Year
  Sex: Female
  Weight: 77 kg

DRUGS (5)
  1. FOSAMAX [Suspect]
     Indication: OSTEOPENIA
     Route: 048
     Dates: start: 20021007, end: 20080101
  2. FOSAMAX [Suspect]
     Route: 048
     Dates: end: 20100101
  3. PREMARIN [Concomitant]
     Indication: OESTROGEN REPLACEMENT THERAPY
     Route: 048
  4. ALENDRONATE SODIUM [Suspect]
     Indication: OSTEOPENIA
     Route: 048
     Dates: start: 20080215, end: 20100301
  5. PREDNISONE [Concomitant]
     Dosage: SOMETIMES 1 TABLET PER DAY
     Route: 048

REACTIONS (30)
  - LOW TURNOVER OSTEOPATHY [None]
  - RECTAL HAEMORRHAGE [None]
  - HAEMORRHAGE [None]
  - ASTHMA [None]
  - DEPRESSION [None]
  - KYPHOSIS [None]
  - CHEST PAIN [None]
  - FALL [None]
  - DIARRHOEA [None]
  - FEELING OF BODY TEMPERATURE CHANGE [None]
  - ROTATOR CUFF SYNDROME [None]
  - LIGAMENT SPRAIN [None]
  - POLLAKIURIA [None]
  - TOOTH EXTRACTION [None]
  - DRUG HYPERSENSITIVITY [None]
  - SALPINGO-OOPHORECTOMY UNILATERAL [None]
  - MUSCLE STRAIN [None]
  - LIMB INJURY [None]
  - FEMUR FRACTURE [None]
  - FOOT FRACTURE [None]
  - PLANTAR FASCIITIS [None]
  - NOCTURIA [None]
  - HEADACHE [None]
  - BURSITIS [None]
  - GASTROOESOPHAGEAL REFLUX DISEASE [None]
  - DERMATITIS CONTACT [None]
  - SPINAL DEFORMITY [None]
  - NON-CARDIAC CHEST PAIN [None]
  - HAEMORRHOIDS [None]
  - DYSURIA [None]
